FAERS Safety Report 15121222 (Version 1)
Quarter: 2018Q3

REPORT INFORMATION
  Report Type: Report from Study
  Country: None (occurrence: BR)
  Receive Date: 20180709
  Receipt Date: 20180709
  Transmission Date: 20181010
  Serious: Yes (Hospitalization, Other)
  Sender: FDA-Public Use
  Company Number: BR-ABBVIE-18K-020-2411687-00

PATIENT
  Sex: Female
  Weight: 56 kg

DRUGS (5)
  1. CLONAZEPAM. [Concomitant]
     Active Substance: CLONAZEPAM
     Indication: DEPRESSION
  2. HUMIRA [Suspect]
     Active Substance: ADALIMUMAB
     Indication: CROHN^S DISEASE
     Dosage: LOADING DOSE, WEEK 0
     Route: 058
     Dates: start: 20110101, end: 20110101
  3. HUMIRA [Suspect]
     Active Substance: ADALIMUMAB
     Dosage: LOADING DOSE, WEEK 2
     Route: 058
     Dates: start: 201101, end: 201101
  4. HUMIRA [Suspect]
     Active Substance: ADALIMUMAB
     Route: 058
     Dates: start: 2011
  5. GLIFAGE [Concomitant]
     Active Substance: METFORMIN HYDROCHLORIDE
     Indication: DIABETES MELLITUS

REACTIONS (8)
  - Nephrolithiasis [Recovering/Resolving]
  - Vaginal discharge [Recovered/Resolved]
  - Polymenorrhoea [Recovered/Resolved]
  - Kidney enlargement [Recovered/Resolved]
  - Urinary tract infection [Recovered/Resolved]
  - Vaginal odour [Recovered/Resolved]
  - Amnesia [Recovering/Resolving]
  - Uterine infection [Recovered/Resolved]

NARRATIVE: CASE EVENT DATE: 2013
